FAERS Safety Report 7952085-3 (Version None)
Quarter: 2011Q4

REPORT INFORMATION
  Report Type: 
  Country: None (occurrence: None)
  Receive Date: 20111201
  Receipt Date: 20111124
  Transmission Date: 20120403
  Serious: Yes (Death, Life-Threatening, Hospitalization, Other)
  Sender: FDA-Public Use
  Company Number: PHHY2011JP88167

PATIENT
  Sex: Male

DRUGS (31)
  1. HALCION [Concomitant]
     Dosage: 0.25 MG, DAILY
     Route: 048
     Dates: start: 20110927, end: 20111003
  2. TOFRANIL [Concomitant]
     Dosage: 10 MG, DAILY
     Route: 048
  3. LAXOBERON [Concomitant]
     Dosage: UNK UKN, UNK
     Dates: start: 20110929
  4. SULFAMETHOXAZOLE AND TRIMETHOPRIM [Concomitant]
     Dosage: 2 DF, DAILY
     Route: 048
     Dates: start: 20111002, end: 20111003
  5. SEISHOKU [Concomitant]
     Dosage: 100 ML, DAILY
     Dates: start: 20111002, end: 20111004
  6. GLYCYRRHIZIC ACID, AMMONIUM SALT [Concomitant]
     Dosage: 60 ML
     Dates: start: 20111005, end: 20111005
  7. MAGNESIUM OXIDE [Concomitant]
     Dosage: 1 G, DAILY
     Route: 048
     Dates: start: 20111001
  8. MUCODYNE [Concomitant]
     Dosage: 1000 MG, DAILY
     Route: 048
  9. FAMOTIDINE [Concomitant]
     Dosage: 20 MG, DAILY
     Dates: start: 20110927, end: 20111003
  10. SEISHOKU [Concomitant]
     Dosage: 20 ML, DAILY
     Dates: start: 20111002
  11. TOFRANIL [Concomitant]
     Dosage: 30 MG, DAILY
     Route: 048
     Dates: start: 20110927
  12. HYDREA [Concomitant]
     Dosage: 1000 MG, DAILY
     Route: 048
     Dates: start: 20110928, end: 20111001
  13. HYDREA [Concomitant]
     Dosage: 1500 MG, DAILY
     Dates: start: 20111002, end: 20111003
  14. SILECE [Concomitant]
     Dosage: 2 MG, DAILY
     Route: 048
     Dates: start: 20110927, end: 20111002
  15. MEILAX [Concomitant]
     Dosage: 1 MG, DAILY
     Route: 048
     Dates: start: 20110927
  16. MEILAX [Concomitant]
     Dosage: 1 MG, DAILY
  17. ALLOPURINOL [Concomitant]
     Dosage: 200 MG, DAILY
     Route: 048
     Dates: start: 20110927, end: 20111003
  18. MUCODYNE [Concomitant]
     Dosage: 1500 MG, DAILY
     Route: 048
     Dates: start: 20111001
  19. NOVO HEPARIN [Concomitant]
     Dosage: 10000 IU, DAILY
     Dates: start: 20110927
  20. SODIUM CHLORIDE SOLUTION [Concomitant]
     Dosage: 500 MG, DAILY
     Dates: start: 20110927
  21. SEISHOKU [Concomitant]
     Dosage: 10 ML, DAILY
  22. FUNGUARD [Concomitant]
     Dosage: 150 MG, UNK
     Dates: start: 20111002, end: 20111004
  23. PREDNISOLONE [Concomitant]
     Dosage: 60 MG, DAILY
     Dates: start: 20111002, end: 20111003
  24. DEXTROSE [Concomitant]
     Dosage: 500 ML
     Dates: start: 20111004
  25. DEXTROSE [Concomitant]
     Dosage: 1000 ML
     Dates: end: 20111005
  26. TASIGNA [Suspect]
     Indication: CHRONIC MYELOID LEUKAEMIA
     Dosage: 150 MG, QD
     Route: 048
     Dates: start: 20111003, end: 20111003
  27. PURSENNID [Concomitant]
     Dosage: UNK UKN, UNK
     Dates: start: 20110928
  28. ZOLPIDEM [Concomitant]
     Dosage: 5 MG, DAILY
     Route: 048
     Dates: start: 20110927, end: 20111003
  29. DEXALTIN [Concomitant]
     Dosage: UNK UKN, UNK
  30. LENDORMIN [Concomitant]
     Dosage: UNK UKN, UNK
     Route: 048
     Dates: start: 20111001
  31. PACIL [Concomitant]
     Dosage: 1000 MG, DAILY
     Dates: start: 20111002

REACTIONS (10)
  - HYPERGLYCAEMIA [None]
  - DISSEMINATED INTRAVASCULAR COAGULATION [None]
  - COAGULOPATHY [None]
  - COMA [None]
  - SUBCUTANEOUS HAEMATOMA [None]
  - METABOLIC ACIDOSIS [None]
  - EMPHYSEMA [None]
  - NEOPLASM PROGRESSION [None]
  - HEPATITIS FULMINANT [None]
  - TUMOUR LYSIS SYNDROME [None]
